FAERS Safety Report 4636384-9 (Version None)
Quarter: 2005Q2

REPORT INFORMATION
  Report Type: 
  Country: None (occurrence: None)
  Receive Date: 20050415
  Receipt Date: 20050406
  Transmission Date: 20051028
  Serious: Yes (Hospitalization)
  Sender: FDA-Public Use
  Company Number: FR-JNJFOC-20050401453

PATIENT
  Age: 42 Year
  Sex: Female

DRUGS (7)
  1. RISPERDAL [Suspect]
     Indication: ABNORMAL BEHAVIOUR
     Route: 049
  2. RISPERDAL [Suspect]
     Route: 049
  3. ZELITREX [Suspect]
     Route: 049
  4. ADIAZINE [Concomitant]
  5. DEPAKENE [Concomitant]
  6. MALOCIDE [Concomitant]
  7. TRIFLUCAN [Concomitant]

REACTIONS (1)
  - PANCYTOPENIA [None]
